FAERS Safety Report 17985540 (Version 1)
Quarter: 2020Q3

REPORT INFORMATION
  Report Type: Report from Study
  Country: BR (occurrence: BR)
  Receive Date: 20200706
  Receipt Date: 20200706
  Transmission Date: 20201103
  Serious: Yes (Hospitalization, Other)
  Sender: FDA-Public Use
  Company Number: NVSC2020BR189528

PATIENT
  Sex: Male

DRUGS (1)
  1. OMNITROPE [Suspect]
     Active Substance: SOMATROPIN
     Indication: MUSCLE STRENGTH NORMAL
     Dosage: 2 UI
     Route: 065

REACTIONS (3)
  - COVID-19 [Unknown]
  - Product use issue [Unknown]
  - Asthenia [Unknown]
